FAERS Safety Report 15394989 (Version 8)
Quarter: 2019Q2

REPORT INFORMATION
  Report Type: Report from Study
  Country: PT (occurrence: PT)
  Receive Date: 20180918
  Receipt Date: 20190405
  Transmission Date: 20190711
  Serious: Yes (Other)
  Sender: FDA-Public Use
  Company Number: PT-BIOGEN-2018BI00629741

PATIENT
  Age: 59 Year
  Sex: Male

DRUGS (6)
  1. BISOPROLOL [Concomitant]
     Active Substance: BISOPROLOL
     Indication: PRODUCT USED FOR UNKNOWN INDICATION
     Route: 050
  2. OLMETEC [Concomitant]
     Active Substance: OLMESARTAN MEDOXOMIL
     Indication: PRODUCT USED FOR UNKNOWN INDICATION
     Route: 050
  3. FAMPYRA [Suspect]
     Active Substance: DALFAMPRIDINE
     Indication: GAIT DISTURBANCE
     Route: 050
  4. ZOCOR [Concomitant]
     Active Substance: SIMVASTATIN
     Indication: PRODUCT USED FOR UNKNOWN INDICATION
     Route: 050
  5. PLEGRIDY [Suspect]
     Active Substance: PEGINTERFERON BETA-1A
     Indication: MULTIPLE SCLEROSIS
     Route: 050
     Dates: start: 20180307
  6. VIGANTOL [COLECALCIFEROL] [Concomitant]
     Active Substance: CHOLECALCIFEROL
     Indication: PRODUCT USED FOR UNKNOWN INDICATION
     Route: 050

REACTIONS (12)
  - Hypertrophic cardiomyopathy [Not Recovered/Not Resolved]
  - Ventricular extrasystoles [Unknown]
  - Splenomegaly [Not Recovered/Not Resolved]
  - Atrial tachycardia [Unknown]
  - Alanine aminotransferase abnormal [Unknown]
  - Bundle branch block left [Not Recovered/Not Resolved]
  - Aspartate aminotransferase abnormal [Unknown]
  - Gamma-glutamyltransferase abnormal [Unknown]
  - Pericardial haemorrhage [Not Recovered/Not Resolved]
  - Supraventricular extrasystoles [Unknown]
  - Platelet count decreased [Unknown]
  - Benign prostatic hyperplasia [Not Recovered/Not Resolved]

NARRATIVE: CASE EVENT DATE: 201805
